FAERS Safety Report 12268603 (Version 1)
Quarter: 2016Q2

REPORT INFORMATION
  Report Type: Spontaneous
  Country: US (occurrence: US)
  Receive Date: 20160414
  Receipt Date: 20160414
  Transmission Date: 20160815
  Serious: Yes (Hospitalization)
  Sender: FDA-Public Use
  Company Number: US-SA-2016SA071901

PATIENT
  Age: 60 Year
  Sex: Female

DRUGS (4)
  1. ZOLOFT [Concomitant]
     Active Substance: SERTRALINE HYDROCHLORIDE
  2. NAMENDA [Concomitant]
     Active Substance: MEMANTINE HYDROCHLORIDE
  3. LOVAZA [Concomitant]
     Active Substance: OMEGA-3-ACID ETHYL ESTERS
  4. AUBAGIO [Suspect]
     Active Substance: TERIFLUNOMIDE
     Route: 048
     Dates: start: 20140326, end: 201603

REACTIONS (3)
  - Bronchitis [Unknown]
  - Asthma [Unknown]
  - Swelling face [Unknown]

NARRATIVE: CASE EVENT DATE: 201603
